FAERS Safety Report 14942408 (Version 2)
Quarter: 2018Q3

REPORT INFORMATION
  Report Type: Spontaneous
  Country: ES (occurrence: ES)
  Receive Date: 20180528
  Receipt Date: 20180723
  Transmission Date: 20181010
  Serious: Yes (Hospitalization)
  Sender: FDA-Public Use
  Company Number: ES-TEVA-2018-ES-897163

PATIENT
  Age: 84 Year
  Sex: Female

DRUGS (4)
  1. DEPAKINE [Concomitant]
     Active Substance: VALPROATE SODIUM
     Indication: STATUS EPILEPTICUS
     Route: 048
     Dates: start: 20171220, end: 20171224
  2. DEPAKINE 200 MG/ML SOLUCION ORAL , 1 FRASCO DE 60 ML [Suspect]
     Active Substance: VALPROATE SODIUM
     Indication: STATUS EPILEPTICUS
     Dosage: 500 MG 3 TIMES/DAY REDUCED DOSE TO 500 MG 2 TIMES/DAY
     Route: 048
     Dates: start: 20171225
  3. FUROSEMIDA ALTER 40 MG COMPRIMIDOS EFG, 30 COMPRIMIDOS [Concomitant]
     Dosage: 1 IN THE MORNING
     Dates: start: 20171228
  4. SERTRALINA BEXAL 50 MG COMPRIMIDOS RECUBIERTOS CON PELICULA EFG , 30 C [Suspect]
     Active Substance: SERTRALINE HYDROCHLORIDE
     Indication: AFFECTIVE DISORDER
     Dosage: 1 IN THE MORNING
     Route: 048
     Dates: start: 20171228, end: 20180208

REACTIONS (5)
  - Mobility decreased [Recovering/Resolving]
  - Tremor [Recovered/Resolved]
  - Depressed level of consciousness [Recovered/Resolved]
  - Dyskinesia [Recovered/Resolved]
  - Nausea [Recovered/Resolved]

NARRATIVE: CASE EVENT DATE: 20180125
